FAERS Safety Report 5684220-4 (Version None)
Quarter: 2008Q1

REPORT INFORMATION
  Report Type: 
  Country: None (occurrence: None)
  Receive Date: 20080328
  Receipt Date: 20071227
  Transmission Date: 20080703
  Serious: No
  Sender: FDA-Public Use
  Company Number: US-AMGEN-KDL247705

PATIENT
  Sex: Female

DRUGS (6)
  1. NEULASTA [Suspect]
     Indication: CHEMOTHERAPY
     Route: 058
     Dates: start: 20071003, end: 20071003
  2. PACLITAXEL [Concomitant]
     Dates: start: 20070620, end: 20071031
  3. CISPLATIN [Concomitant]
     Dates: start: 20070710, end: 20071025
  4. DRONABINOL [Concomitant]
  5. APREPITANT [Concomitant]
  6. DEXAMETHASONE TAB [Concomitant]

REACTIONS (4)
  - BONE PAIN [None]
  - HYPOAESTHESIA FACIAL [None]
  - PARAESTHESIA [None]
  - PARAESTHESIA ORAL [None]
